FAERS Safety Report 4437952-X (Version None)
Quarter: 2004Q3

REPORT INFORMATION
  Report Type: 
  Country: None (occurrence: None)
  Receive Date: 20040831
  Receipt Date: 20040827
  Transmission Date: 20050211
  Serious: Yes (Other)
  Sender: FDA-Public Use
  Company Number: US-GLAXOSMITHKLINE-A0523830A

PATIENT
  Age: 79 Year
  Sex: Male

DRUGS (2)
  1. WELLBUTRIN [Suspect]
     Indication: DEPRESSION
     Route: 048
  2. CLONIDINE HCL [Concomitant]

REACTIONS (5)
  - CONVULSION [None]
  - DRUG INEFFECTIVE [None]
  - EUPHORIC MOOD [None]
  - INSOMNIA [None]
  - PSYCHOMOTOR HYPERACTIVITY [None]
